FAERS Safety Report 8990421 (Version 2)
Quarter: 2013Q1

REPORT INFORMATION
  Report Type: Report from Study
  Country: GR (occurrence: GR)
  Receive Date: 20121228
  Receipt Date: 20130219
  Transmission Date: 20140127
  Serious: Yes (Hospitalization)
  Sender: FDA-Public Use
  Company Number: GR-ABBOTT-12P-066-1026728-00

PATIENT
  Sex: Male

DRUGS (2)
  1. HUMIRA [Suspect]
     Indication: ANKYLOSING SPONDYLITIS
     Route: 058
     Dates: start: 20120613
  2. HUMIRA [Suspect]
     Dates: start: 20130116

REACTIONS (2)
  - Calculus bladder [Recovered/Resolved]
  - Malaise [Not Recovered/Not Resolved]
